FAERS Safety Report 15759364 (Version 1)
Quarter: 2018Q4

REPORT INFORMATION
  Report Type: Report from Study
  Country: US (occurrence: US)
  Receive Date: 20181226
  Receipt Date: 20181226
  Transmission Date: 20190205
  Serious: Yes (Hospitalization, Other)
  Sender: FDA-Public Use
  Company Number: US-ROCHE-2104277

PATIENT
  Age: 76 Year
  Sex: Female
  Weight: 65.83 kg

DRUGS (21)
  1. ESBRIET [Suspect]
     Active Substance: PIRFENIDONE
     Indication: IDIOPATHIC PULMONARY FIBROSIS
     Dosage: TWO 267MG THREE TIMES A DAY
     Route: 048
     Dates: start: 201802
  2. ESBRIET [Suspect]
     Active Substance: PIRFENIDONE
     Dosage: 3 TAB WITH MEALS
     Route: 048
     Dates: start: 20180212
  3. TESSALON [Concomitant]
     Active Substance: BENZONATATE
     Route: 065
  4. MIRTAZAPINE. [Concomitant]
     Active Substance: MIRTAZAPINE
     Route: 065
  5. ESBRIET [Suspect]
     Active Substance: PIRFENIDONE
     Dosage: 3 TAB WITH MEALS
     Route: 048
     Dates: start: 20180214
  6. ATORVASTATIN [Concomitant]
     Active Substance: ATORVASTATIN
  7. METFORMIN HCL [Concomitant]
     Active Substance: METFORMIN HYDROCHLORIDE
  8. OMEPRAZOLE. [Concomitant]
     Active Substance: OMEPRAZOLE
     Route: 048
     Dates: start: 2017
  9. SUCRALFATE. [Concomitant]
     Active Substance: SUCRALFATE
  10. VITAMIN B12 [Concomitant]
     Active Substance: CYANOCOBALAMIN
     Route: 065
  11. ASPIRIN. [Concomitant]
     Active Substance: ASPIRIN
  12. LOSARTAN. [Concomitant]
     Active Substance: LOSARTAN
     Route: 065
  13. METOPROLOL TARTRATE. [Concomitant]
     Active Substance: METOPROLOL TARTRATE
     Route: 065
  14. BENADRYL [Concomitant]
     Active Substance: DIPHENHYDRAMINE HYDROCHLORIDE
  15. NITROGLYCERINE [Concomitant]
     Active Substance: NITROGLYCERIN
  16. AMLODIPINE BENZENESULFONATE [Concomitant]
     Route: 065
  17. MONTELUKAST [Concomitant]
     Active Substance: MONTELUKAST SODIUM
     Route: 065
  18. TYLENOL [Concomitant]
     Active Substance: ACETAMINOPHEN
     Indication: HEADACHE
     Route: 065
  19. MIRTAZAPINE. [Concomitant]
     Active Substance: MIRTAZAPINE
     Route: 065
  20. ACETAMINOPHEN. [Concomitant]
     Active Substance: ACETAMINOPHEN
  21. ALBUTEROL. [Concomitant]
     Active Substance: ALBUTEROL

REACTIONS (18)
  - Fall [Unknown]
  - Ill-defined disorder [Unknown]
  - Anaemia [Not Recovered/Not Resolved]
  - Dyskinesia [Recovered/Resolved with Sequelae]
  - Headache [Recovered/Resolved with Sequelae]
  - Glassy eyes [Recovered/Resolved]
  - Dizziness [Unknown]
  - Loss of consciousness [Recovered/Resolved with Sequelae]
  - Vomiting [Recovered/Resolved with Sequelae]
  - Cardiac flutter [Not Recovered/Not Resolved]
  - Paranasal sinus hypersecretion [Not Recovered/Not Resolved]
  - Head injury [Unknown]
  - Dizziness [Recovered/Resolved with Sequelae]
  - Hypertension [Unknown]
  - Cough [Not Recovered/Not Resolved]
  - Seizure [Recovered/Resolved with Sequelae]
  - Cough [Not Recovered/Not Resolved]
  - Heart rate increased [Unknown]

NARRATIVE: CASE EVENT DATE: 20180228
